FAERS Safety Report 9732424 (Version 1)
Quarter: 2013Q4

REPORT INFORMATION
  Report Type: Spontaneous
  Country: US (occurrence: US)
  Receive Date: 20131204
  Receipt Date: 20131204
  Transmission Date: 20140711
  Serious: No
  Sender: FDA-Public Use
  Company Number: US-ENDO PHARMACEUTICALS INC.-ZOLP20120089

PATIENT
  Sex: Female

DRUGS (3)
  1. ZOLPIDEM TARTRATE TABLETS [Suspect]
     Indication: INSOMNIA
     Route: 048
  2. ZOLPIDEM TARTRATE TABLETS [Suspect]
     Route: 048
  3. ZOLPIDEM TARTRATE TABLETS [Suspect]
     Route: 048

REACTIONS (7)
  - Impaired gastric emptying [Unknown]
  - Therapeutic response increased [Recovered/Resolved]
  - Feeling abnormal [Recovered/Resolved]
  - Micturition urgency [Not Recovered/Not Resolved]
  - Condition aggravated [Not Recovered/Not Resolved]
  - Somnambulism [Unknown]
  - Drug ineffective [Recovered/Resolved]
